FAERS Safety Report 17827477 (Version 3)
Quarter: 2020Q2

REPORT INFORMATION
  Report Type: Spontaneous
  Country: US (occurrence: US)
  Receive Date: 20200527
  Receipt Date: 20200626
  Transmission Date: 20200714
  Serious: Yes (Hospitalization)
  Sender: FDA-Public Use
  Company Number: US-TEVA-2020-US-1239026

PATIENT
  Sex: Male
  Weight: 57.15 kg

DRUGS (2)
  1. EPOPROSTENOL. [Suspect]
     Active Substance: EPOPROSTENOL
     Dosage: EPOPROSTENOL 36 NG PER KG PER MIN, FORM OF ADMIN: VIAL
     Route: 065
     Dates: start: 20191101
  2. ADEMPAS [Concomitant]
     Active Substance: RIOCIGUAT
     Route: 065

REACTIONS (1)
  - Pain [Unknown]
